FAERS Safety Report 4898660-4 (Version None)
Quarter: 2006Q1

REPORT INFORMATION
  Report Type: 
  Country: None (occurrence: None)
  Receive Date: 20060127
  Receipt Date: 20060106
  Transmission Date: 20060701
  Serious: Yes (Death, Other)
  Sender: FDA-Public Use
  Company Number: US_0409105620

PATIENT
  Age: 48 Year
  Sex: Male
  Weight: 60.3 kg

DRUGS (1)
  1. ZYPREXA [Suspect]
     Indication: MENTAL IMPAIRMENT
     Dosage: 2.5 MG, ORAL
     Route: 048
     Dates: start: 19971125

REACTIONS (11)
  - ABDOMINAL PAIN UPPER [None]
  - HAEMORRHAGE [None]
  - HEPATITIS VIRAL [None]
  - HYPERPHAGIA [None]
  - HYPERTENSION [None]
  - PANCREATITIS [None]
  - POLYDIPSIA [None]
  - SEXUAL DYSFUNCTION [None]
  - VISION BLURRED [None]
  - VOMITING [None]
  - WEIGHT DECREASED [None]
